FAERS Safety Report 15050251 (Version 2)
Quarter: 2018Q3

REPORT INFORMATION
  Report Type: Spontaneous
  Country: US (occurrence: US)
  Receive Date: 20180622
  Receipt Date: 20180806
  Transmission Date: 20181010
  Serious: Yes (Hospitalization, Other)
  Sender: FDA-Public Use
  Company Number: US-009507513-1806USA005455

PATIENT
  Age: 37 Year
  Sex: Female
  Weight: 90.17 kg

DRUGS (13)
  1. SERTRALINE HYDROCHLORIDE. [Concomitant]
     Active Substance: SERTRALINE HYDROCHLORIDE
     Indication: DEPRESSION
     Dosage: 100 MG, QD
     Route: 048
  2. SINGULAIR [Suspect]
     Active Substance: MONTELUKAST SODIUM
     Route: 048
  3. BREO ELLIPTA [Concomitant]
     Active Substance: FLUTICASONE FUROATE\VILANTEROL TRIFENATATE
  4. BREO ELLIPTA [Concomitant]
     Active Substance: FLUTICASONE FUROATE\VILANTEROL TRIFENATATE
     Indication: ASTHMA
     Dosage: ROUTE REPORTED AS: INHALATION,
     Dates: start: 2016
  5. THEO?24 [Concomitant]
     Active Substance: THEOPHYLLINE ANHYDROUS
     Indication: ASTHMA
     Dosage: 200 MG, UNK
     Route: 048
  6. ALBUTEROL SULFATE. [Concomitant]
     Active Substance: ALBUTEROL SULFATE
  7. ALPRAZOLAM. [Concomitant]
     Active Substance: ALPRAZOLAM
     Indication: ANXIETY
     Dosage: 0.5 MG, UNK
     Route: 048
     Dates: start: 2016
  8. ADVAIR HFA [Concomitant]
     Active Substance: FLUTICASONE PROPIONATE\SALMETEROL XINAFOATE
  9. DEPO?PROVERA [Suspect]
     Active Substance: MEDROXYPROGESTERONE ACETATE
  10. LEVOTHYROXINE SODIUM. [Concomitant]
     Active Substance: LEVOTHYROXINE SODIUM
     Indication: THYROID DISORDER
     Dosage: 200 MICROGRAM (ALSO REPORTED AS 200 MG)
     Route: 048
  11. PROAIR HFA [Concomitant]
     Active Substance: ALBUTEROL SULFATE
  12. TRAZODONE HYDROCHLORIDE. [Concomitant]
     Active Substance: TRAZODONE HYDROCHLORIDE
  13. NEXPLANON [Suspect]
     Active Substance: ETONOGESTREL
     Indication: CONTRACEPTION
     Dosage: 1 DF, UNK
     Route: 058
     Dates: start: 20180402

REACTIONS (7)
  - Unintended pregnancy [Recovered/Resolved]
  - Aspartate aminotransferase decreased [Unknown]
  - Pregnancy with implant contraceptive [Recovered/Resolved]
  - Abortion spontaneous [Recovering/Resolving]
  - Cystitis [Recovering/Resolving]
  - Drug ineffective [Unknown]
  - Blood glucose increased [Unknown]

NARRATIVE: CASE EVENT DATE: 20180424
